FAERS Safety Report 4341382-9 (Version None)
Quarter: 2004Q2

REPORT INFORMATION
  Report Type: 
  Country: None (occurrence: None)
  Receive Date: 20040414
  Receipt Date: 20040329
  Transmission Date: 20050107
  Serious: Yes (Hospitalization, Other)
  Sender: FDA-Public Use
  Company Number: 2004S1000916

PATIENT
  Age: 73 Year
  Sex: Male
  Weight: 77.1115 kg

DRUGS (2)
  1. EXTENDED PHENYTOIN SODIUM [Suspect]
     Indication: GRAND MAL CONVULSION
     Dosage: 100MG Q HS, THEN 200MG Q HS, THEN 300MG Q HS, THEN 400MG Q HS; ORAL
     Route: 048
     Dates: start: 20010101
  2. UNKNOWN HEAT MEDICATION [Suspect]

REACTIONS (7)
  - ANTICONVULSANT DRUG LEVEL DECREASED [None]
  - COMA [None]
  - FALL [None]
  - FEAR [None]
  - GRAND MAL CONVULSION [None]
  - HEAD INJURY [None]
  - TREATMENT NONCOMPLIANCE [None]
